FAERS Safety Report 7296264-X (Version None)
Quarter: 2011Q1

REPORT INFORMATION
  Report Type: 
  Country: None (occurrence: None)
  Receive Date: 20110216
  Receipt Date: 20110216
  Transmission Date: 20110831
  Serious: Yes (Other)
  Sender: FDA-Public Use
  Company Number: US-JNJFOC-20100801119

PATIENT
  Age: 14 Month
  Sex: Female

DRUGS (2)
  1. CONCENTRATED MOTRIN INFANTS DROPS [Suspect]
  2. CONCENTRATED MOTRIN INFANTS DROPS [Suspect]
     Indication: PYREXIA

REACTIONS (2)
  - PRODUCT QUALITY ISSUE [None]
  - FEBRILE CONVULSION [None]
